FAERS Safety Report 23292340 (Version 1)
Quarter: 2023Q4

REPORT INFORMATION
  Report Type: Spontaneous
  Country: US (occurrence: None)
  Receive Date: 20231212
  Receipt Date: 20231212
  Transmission Date: 20240110
  Serious: Yes (Hospitalization)
  Sender: FDA-Public Use
  Company Number: None

PATIENT
  Age: 74 Year
  Sex: Female
  Weight: 119.25 kg

DRUGS (2)
  1. LISINOPRIL AND HYDROCHLOROTHIAZIDE [Suspect]
     Active Substance: HYDROCHLOROTHIAZIDE\LISINOPRIL
     Indication: Hypertension
     Dosage: 1 UNK DALY ORAL?
     Route: 048
     Dates: start: 20230503, end: 20230916
  2. LISINOPRIL [Concomitant]
     Active Substance: LISINOPRIL
     Dates: start: 20221228, end: 20230503

REACTIONS (1)
  - Angioedema [None]

NARRATIVE: CASE EVENT DATE: 20230916
